FAERS Safety Report 9319132 (Version 1)
Quarter: 2013Q2

REPORT INFORMATION
  Report Type: Report from Study
  Country: ES (occurrence: ES)
  Receive Date: 20130530
  Receipt Date: 20130530
  Transmission Date: 20140414
  Serious: Yes (Hospitalization)
  Sender: FDA-Public Use
  Company Number: ES-ROCHE-1229309

PATIENT
  Age: 37 Year
  Sex: Male

DRUGS (5)
  1. RITUXIMAB [Suspect]
     Indication: DERMATITIS ATOPIC
     Dosage: FIRST INTERVENTION
     Route: 042
  2. RITUXIMAB [Suspect]
     Indication: OFF LABEL USE
     Dosage: SECOND INTERVENTION
     Route: 042
  3. RITUXIMAB [Suspect]
     Dosage: THIRD INTERVENTION
     Route: 042
  4. OMALIZUMAB [Suspect]
     Indication: DERMATITIS ATOPIC
     Dosage: FOR ONE CYCLE
     Route: 042
  5. CYCLOSPORIN [Concomitant]
     Dosage: FOR 1 MONTH CYCLE
     Route: 048

REACTIONS (2)
  - Mononucleosis syndrome [Unknown]
  - Neutropenia [Unknown]
